FAERS Safety Report 8197968-7 (Version None)
Quarter: 2012Q1

REPORT INFORMATION
  Report Type: 
  Country: None (occurrence: None)
  Receive Date: 20120309
  Receipt Date: 20111206
  Transmission Date: 20120608
  Serious: No
  Sender: FDA-Public Use
  Company Number: US-AMGEN-USASP2011064888

PATIENT
  Age: 60 Year
  Sex: Female

DRUGS (6)
  1. VITAMIN D SUPPLEMENTS [Concomitant]
  2. SIMVASTATIN [Concomitant]
  3. CALCIUM [Concomitant]
  4. FEMARA [Concomitant]
  5. XGEVA [Suspect]
     Indication: BREAST CANCER METASTATIC
     Dates: start: 20111110
  6. ZYRTEC [Concomitant]

REACTIONS (1)
  - BLOOD ALKALINE PHOSPHATASE INCREASED [None]
